FAERS Safety Report 8173493-4 (Version None)
Quarter: 2012Q1

REPORT INFORMATION
  Report Type: 
  Country: None (occurrence: None)
  Receive Date: 20120227
  Receipt Date: 20120210
  Transmission Date: 20120608
  Serious: Yes (Other)
  Sender: FDA-Public Use
  Company Number: 2011SP054941

PATIENT
  Age: 50 Year
  Sex: Female

DRUGS (5)
  1. RIBAVIRIN [Suspect]
     Indication: HEPATITIS C
     Dates: start: 20111114
  2. RIBAVIRIN [Suspect]
     Indication: HEPATITIS C
     Dates: start: 20090101, end: 20090301
  3. VICTRELIS [Suspect]
     Indication: HEPATITIS C
     Dates: start: 20111221
  4. PEG-INTRON [Suspect]
     Indication: HEPATITIS C
     Dates: start: 20111114
  5. PEG-INTRON [Suspect]
     Indication: HEPATITIS C
     Dates: start: 20090101, end: 20090301

REACTIONS (12)
  - OEDEMA PERIPHERAL [None]
  - RED BLOOD CELL COUNT DECREASED [None]
  - FATIGUE [None]
  - INJECTION SITE PAIN [None]
  - HYPERTENSION [None]
  - INJECTION SITE ERYTHEMA [None]
  - DIABETES MELLITUS [None]
  - PRURITUS [None]
  - DYSGEUSIA [None]
  - BILIARY CIRRHOSIS PRIMARY [None]
  - HEPATIC CIRRHOSIS [None]
  - ASCITES [None]
